FAERS Safety Report 4854514-0 (Version None)
Quarter: 2005Q4

REPORT INFORMATION
  Report Type: 
  Country: None (occurrence: None)
  Receive Date: 20051213
  Receipt Date: 20051130
  Transmission Date: 20060501
  Serious: Yes (Other)
  Sender: FDA-Public Use
  Company Number: 2005164817

PATIENT

DRUGS (1)
  1. CETIRIZINE HCL [Suspect]

REACTIONS (2)
  - DRUG TOXICITY [None]
  - EPIDERMOLYSIS [None]
